FAERS Safety Report 5285155-1 (Version None)
Quarter: 2007Q2

REPORT INFORMATION
  Report Type: 
  Country: None (occurrence: None)
  Receive Date: 20070403
  Receipt Date: 20070323
  Transmission Date: 20071010
  Serious: Yes (Other)
  Sender: FDA-Public Use
  Company Number: BR-PFIZER INC-2006134714

PATIENT
  Sex: Female

DRUGS (5)
  1. FELDENE [Suspect]
     Indication: PNEUMONIA
     Route: 048
  2. MELOXICAM [Suspect]
     Indication: PAIN
     Route: 048
     Dates: start: 20061017, end: 20061017
  3. POLYCARBOPHIL CALCIUM [Concomitant]
     Route: 048
  4. ACETAMINOPHEN W/ CODEINE [Concomitant]
     Route: 048
     Dates: start: 20061017
  5. POLYCARBOPHIL CALCIUM [Concomitant]

REACTIONS (13)
  - ARTICULAR CALCIFICATION [None]
  - ASTHENIA [None]
  - BLOOD PRESSURE INCREASED [None]
  - CONFUSIONAL STATE [None]
  - CONVULSION [None]
  - DIVERTICULUM [None]
  - GAIT DISTURBANCE [None]
  - MALAISE [None]
  - MUSCLE DISORDER [None]
  - PAIN IN EXTREMITY [None]
  - PARAESTHESIA ORAL [None]
  - TREMOR [None]
  - VOMITING [None]
